FAERS Safety Report 14937766 (Version 2)
Quarter: 2018Q4

REPORT INFORMATION
  Report Type: Spontaneous
  Country: FR (occurrence: FR)
  Receive Date: 20180525
  Receipt Date: 20181105
  Transmission Date: 20190204
  Serious: Yes (Hospitalization, Other)
  Sender: FDA-Public Use
  Company Number: FR-AUROBINDO-AUR-APL-2018-002171

PATIENT
  Age: 60 Year
  Sex: Female

DRUGS (8)
  1. PREDNISOLONE. [Suspect]
     Active Substance: PREDNISOLONE
     Indication: IMMUNOSUPPRESSANT DRUG THERAPY
     Dosage: 15 MILLIGRAM, DAILY
     Route: 065
  2. PREDNISOLONE. [Suspect]
     Active Substance: PREDNISOLONE
     Indication: RENAL TRANSPLANT
     Dosage: 15 MILLIGRAM, ONCE A DAY (15 MG, QD LATER DOSE TAPERED)
     Route: 065
  3. MYCOPHENOLATE MOFETIL. [Suspect]
     Active Substance: MYCOPHENOLATE MOFETIL
     Indication: RENAL TRANSPLANT
  4. AMOXICILLIN+CLAVULANIC ACID [Suspect]
     Active Substance: AMOXICILLIN\CLAVULANIC ACID
     Indication: SUBCUTANEOUS ABSCESS
     Dosage: UNK
     Route: 065
  5. TACROLIMUS. [Suspect]
     Active Substance: TACROLIMUS
     Dosage: 15 MG, QD, LATER DOSE TAPERED
     Route: 065
  6. MYCOPHENOLATE MOFETIL. [Suspect]
     Active Substance: MYCOPHENOLATE MOFETIL
     Indication: IMMUNOSUPPRESSANT DRUG THERAPY
     Dosage: 1500 MILLIGRAM, ONCE A DAY
     Route: 065
  7. TACROLIMUS. [Suspect]
     Active Substance: TACROLIMUS
     Indication: IMMUNOSUPPRESSANT DRUG THERAPY
     Dosage: 15 MILLIGRAM, DAILY
     Route: 065
  8. TACROLIMUS. [Suspect]
     Active Substance: TACROLIMUS
     Indication: RENAL TRANSPLANT
     Dosage: TAPERED DOSE
     Route: 065

REACTIONS (8)
  - Subcutaneous abscess [Recovered/Resolved]
  - Chills [Recovered/Resolved]
  - C-reactive protein increased [Recovered/Resolved]
  - Therapy non-responder [Unknown]
  - Pyrexia [Recovered/Resolved]
  - Swelling [Recovered/Resolved]
  - Skin mass [Recovered/Resolved]
  - Trichosporon infection [Recovered/Resolved]
